FAERS Safety Report 9121006 (Version 1)
Quarter: 2013Q1

REPORT INFORMATION
  Report Type: Spontaneous
  Country: JP (occurrence: JP)
  Receive Date: 20130226
  Receipt Date: 20130226
  Transmission Date: 20140127
  Serious: Yes (Other)
  Sender: FDA-Public Use
  Company Number: JP-ROCHE-1194836

PATIENT
  Age: 4 Year
  Sex: Female
  Weight: 17 kg

DRUGS (3)
  1. PEGASYS [Suspect]
     Indication: CHRONIC HEPATITIS C
     Route: 058
     Dates: start: 20080722, end: 20080820
  2. PEGASYS [Suspect]
     Indication: CHRONIC HEPATITIS C
     Route: 058
     Dates: start: 20080829, end: 20090813
  3. CALONAL [Concomitant]
     Indication: PYREXIA
     Dosage: TAKEN FOR FEVER
     Route: 048
     Dates: start: 20080723, end: 20081024

REACTIONS (3)
  - Failure to thrive [Recovering/Resolving]
  - Pyrexia [Recovering/Resolving]
  - Alopecia [Recovered/Resolved]
